FAERS Safety Report 9314134 (Version 5)
Quarter: 2013Q4

REPORT INFORMATION
  Report Type: Report from Study
  Country: CA (occurrence: CA)
  Receive Date: 20130529
  Receipt Date: 20131001
  Transmission Date: 20140711
  Serious: Yes (Hospitalization, Other)
  Sender: FDA-Public Use
  Company Number: CA-INCYTE CORPORATION-2013IN001024

PATIENT
  Age: 68 Year
  Sex: Male

DRUGS (5)
  1. JAKAVI [Suspect]
     Indication: MYELOFIBROSIS
     Dosage: 15 MG, BID
     Route: 048
     Dates: start: 20130408, end: 20130422
  2. JAKAVI [Suspect]
     Dosage: 5 MG,BID
     Route: 048
     Dates: start: 20130508
  3. RAMIPRIL [Concomitant]
  4. RANITIDINE [Concomitant]
  5. DIURETICS (NO INGREDIENT/SUBSTANCES) [Concomitant]

REACTIONS (8)
  - Feeling abnormal [Unknown]
  - Gout [Not Recovered/Not Resolved]
  - Blood uric acid increased [Unknown]
  - Leukaemia [Unknown]
  - White blood cell count decreased [Recovering/Resolving]
  - Platelet count decreased [Unknown]
  - Haemoglobin decreased [Not Recovered/Not Resolved]
  - Drug ineffective [Unknown]
